FAERS Safety Report 18741807 (Version 2)
Quarter: 2021Q1

REPORT INFORMATION
  Report Type: Spontaneous
  Country: US (occurrence: US)
  Receive Date: 20210114
  Receipt Date: 20210205
  Transmission Date: 20210419
  Serious: Yes (Other)
  Sender: FDA-Public Use
  Company Number: US-BAUSCH-BL-2020-039706

PATIENT
  Age: 74 Year
  Sex: Female
  Weight: 63.6 kg

DRUGS (27)
  1. HYDRALAZINE [Interacting]
     Active Substance: HYDRALAZINE HYDROCHLORIDE
     Indication: ATRIAL FIBRILLATION
     Dosage: DURING HOSPITALIZATION (DAY 11?DAY 29)
     Route: 048
  2. AMLODIPINE [Concomitant]
     Active Substance: AMLODIPINE BESYLATE
     Indication: HYPERTENSION
  3. LIDOCAINE. [Concomitant]
     Active Substance: LIDOCAINE
     Indication: PAIN
     Dosage: DURING HOSPITALIZATION (DAY 14?DAY 19), DAILY
  4. BORTEZOMIB. [Interacting]
     Active Substance: BORTEZOMIB
     Indication: PLASMA CELL MYELOMA
     Dosage: DAY 16
     Route: 058
  5. DEXAMETHASONE. [Concomitant]
     Active Substance: DEXAMETHASONE
     Dosage: DURING HOSPITALIZATION (DAY 16?DAY 20)
     Route: 042
  6. DEXAMETHASONE. [Concomitant]
     Active Substance: DEXAMETHASONE
     Dosage: DURING HOSPITALIZATION (DAY 21?DAY 28)
     Route: 048
  7. LABETALOL [Concomitant]
     Active Substance: LABETALOL\LABETALOL HYDROCHLORIDE
     Indication: ATRIAL FIBRILLATION
     Dosage: DAY 11?DAY 19
     Route: 048
  8. OXYCODONE [Concomitant]
     Active Substance: OXYCODONE
     Dosage: DURING HOSPITALIZATION (DAY 22?DAY 29), AS NEEDED (PRN) SEVERE PAIN
     Route: 048
  9. METHADONE [Concomitant]
     Active Substance: METHADONE HYDROCHLORIDE
     Indication: PAIN
     Dosage: DURING HOSPITALIZATION (DAY 10?DAY 29)
     Route: 048
  10. DEXAMETHASONE. [Concomitant]
     Active Substance: DEXAMETHASONE
     Indication: PAIN
     Dosage: DURING HOSPITALIZATION
     Route: 042
  11. DEXAMETHASONE. [Concomitant]
     Active Substance: DEXAMETHASONE
     Dosage: DURING HOSPITALIZATION (DAY 21?DAY 28)
     Route: 048
  12. HYDRALAZINE [Interacting]
     Active Substance: HYDRALAZINE HYDROCHLORIDE
     Indication: HYPERTENSION
  13. LABETALOL [Concomitant]
     Active Substance: LABETALOL\LABETALOL HYDROCHLORIDE
     Indication: HYPERTENSION
     Dosage: PRIOR AND DURING HOSPITALIZATION (DAY 0 TO DAY 11)
     Route: 048
  14. PANTOPRAZOLE [Concomitant]
     Active Substance: PANTOPRAZOLE
     Indication: GASTROINTESTINAL DISORDER PROPHYLAXIS
     Route: 048
  15. ACYCLOVIR. [Suspect]
     Active Substance: ACYCLOVIR
     Indication: HERPES VIRUS INFECTION
     Dosage: DURING HOSPITALIZATION (DAY 16?DAY 29)
     Route: 048
  16. DABIGATRAN [Concomitant]
     Active Substance: DABIGATRAN
     Indication: ATRIAL FIBRILLATION
     Dosage: PRIOR AND DURING HOSPITALIZATION (DAY 12 TO DAY 29)
     Route: 048
  17. AMLODIPINE [Concomitant]
     Active Substance: AMLODIPINE BESYLATE
     Indication: ATRIAL FIBRILLATION
     Dosage: DURING HOSPITALIZATION (DAY 12?DAY 29)
     Route: 048
  18. ACETAMINOPHEN/HYDROCODONE [Concomitant]
     Active Substance: ACETAMINOPHEN\HYDROCODONE
     Indication: PAIN
     Dosage: DURING HOSPITALIZATION (DAY 2?DAY 14) (325/5 MG)
     Route: 048
  19. TIZANIDINE. [Interacting]
     Active Substance: TIZANIDINE
     Indication: PAIN
     Dosage: DURING HOSPITALIZATION (DAY 9?DAY 11), BY MOUTH
     Route: 048
  20. BORTEZOMIB. [Interacting]
     Active Substance: BORTEZOMIB
     Dosage: ON DAYS 1,4, AND 8
     Route: 058
  21. LABETALOL [Concomitant]
     Active Substance: LABETALOL\LABETALOL HYDROCHLORIDE
     Dosage: DAY 19?DAY 29
     Route: 048
  22. ACYCLOVIR. [Interacting]
     Active Substance: ACYCLOVIR
     Indication: PROPHYLAXIS
  23. DABIGATRAN [Concomitant]
     Active Substance: DABIGATRAN
     Indication: HYPERTENSION
  24. BACLOFEN. [Concomitant]
     Active Substance: BACLOFEN
     Indication: PAIN
     Dosage: PRIOR AND DURING HOSPITALIZATION (DAY 14?DAY 21)
     Route: 048
  25. ACETAMINOPHEN/HYDROCODONE [Concomitant]
     Active Substance: ACETAMINOPHEN\HYDROCODONE
     Dosage: DURING HOSPITALIZATION (DAY 0?DAY 13) (325/5 MG) AS NEEDED (PRN) FOR MODERATE PAIN
     Route: 048
  26. OXYCODONE [Concomitant]
     Active Substance: OXYCODONE
     Indication: PAIN
     Dosage: DURING HOSPITALIZATION (DAY 19?DAY 29), SUSTAINED RELEASE (SR)
     Route: 048
  27. METHADONE [Concomitant]
     Active Substance: METHADONE HYDROCHLORIDE
     Dosage: DURING HOSPITALIZATION (DAY 10?DAY 29)
     Route: 048

REACTIONS (1)
  - Drug interaction [Unknown]
